FAERS Safety Report 8115009-4 (Version None)
Quarter: 2012Q1

REPORT INFORMATION
  Report Type: 
  Country: None (occurrence: None)
  Receive Date: 20120206
  Receipt Date: 20120202
  Transmission Date: 20120608
  Serious: Yes (Death, Hospitalization)
  Sender: FDA-Public Use
  Company Number: JP-BAYER-201011853BYL

PATIENT
  Age: 77 Year
  Sex: Male
  Weight: 58 kg

DRUGS (16)
  1. NEXAVAR [Suspect]
     Dosage: 400 MG (DAILY DOSE), , ORAL
     Route: 048
     Dates: start: 20100426, end: 20100516
  2. OMEPRAZOLE [Concomitant]
     Dosage: 20 MG (DAILY DOSE), , UNKNOWN
     Route: 065
     Dates: end: 20100521
  3. CARNACULIN [KALLIDINOGENASE] [Concomitant]
     Dosage: 150 MG (DAILY DOSE), , ORAL
     Route: 048
     Dates: end: 20100521
  4. RINDERON-VG [Concomitant]
     Route: 061
     Dates: end: 20100521
  5. GABAPENTIN [Concomitant]
     Dosage: 300 MG (DAILY DOSE), , ORAL
     Route: 048
     Dates: start: 20100421
  6. NEXAVAR [Suspect]
     Indication: HEPATIC NEOPLASM MALIGNANT
     Dosage: 400 MG, BID
     Route: 048
     Dates: start: 20100331, end: 20100413
  7. KETOPROFEN [Concomitant]
     Route: 062
     Dates: end: 20100521
  8. ADONA [Concomitant]
     Dosage: 90 MG (DAILY DOSE), , UNKNOWN
     Route: 065
     Dates: end: 20100521
  9. HYALEIN [Concomitant]
     Route: 031
     Dates: end: 20100521
  10. AMLODIPINE [Concomitant]
     Dosage: 10 MG (DAILY DOSE), , ORAL
     Route: 048
     Dates: start: 20100407, end: 20100521
  11. VESICARE [Concomitant]
     Dosage: 5 MG (DAILY DOSE), , ORAL
     Route: 048
     Dates: end: 20100521
  12. DICLOD [Concomitant]
     Route: 031
     Dates: end: 20100521
  13. OLMESARTAN MEDOXOMIL [Suspect]
     Indication: PRODUCT USED FOR UNKNOWN INDICATION
     Dosage: 40 MG (DAILY DOSE), , ORAL
     Route: 048
     Dates: start: 20100330, end: 20100413
  14. AMLODIPINE [Concomitant]
     Dosage: 5 MG (DAILY DOSE), , ORAL
     Route: 048
     Dates: end: 20100405
  15. VOLTAREN [Concomitant]
     Route: 062
     Dates: end: 20100521
  16. DEXTROMETHORPHAN HYDROBROMIDE [Concomitant]
     Dosage: 45 MG (DAILY DOSE), , ORAL
     Route: 048
     Dates: start: 20100407, end: 20100521

REACTIONS (5)
  - RESPIRATORY FAILURE [None]
  - ADRENAL INSUFFICIENCY [None]
  - HYPERKALAEMIA [None]
  - BLOOD GLUCOSE DECREASED [None]
  - HYPOGLYCAEMIA [None]
